FAERS Safety Report 17245958 (Version 3)
Quarter: 2020Q1

REPORT INFORMATION
  Report Type: Report from Study
  Country: CA (occurrence: CA)
  Receive Date: 20200108
  Receipt Date: 20200223
  Transmission Date: 20200409
  Serious: Yes (Other)
  Sender: FDA-Public Use
  Company Number: CA-BRISTOL-MYERS SQUIBB COMPANY-BMS-2017-049864

PATIENT
  Age: 62 Year
  Sex: Male

DRUGS (2)
  1. ABATACEPT [Suspect]
     Active Substance: ABATACEPT
     Indication: RHEUMATOID ARTHRITIS
     Dosage: 750 MILLIGRAM, QMO
     Route: 042
     Dates: start: 20110506
  2. ABATACEPT [Suspect]
     Active Substance: ABATACEPT
     Indication: PRODUCT USED FOR UNKNOWN INDICATION
     Dosage: 750 MILLIGRAM, Q4WK
     Route: 042
     Dates: start: 20110506

REACTIONS (21)
  - Heart rate irregular [Unknown]
  - Cyst [Unknown]
  - Musculoskeletal pain [Unknown]
  - Secretion discharge [Unknown]
  - Rash macular [Unknown]
  - Arthralgia [Unknown]
  - Fatigue [Unknown]
  - Atrial fibrillation [Unknown]
  - Headache [Unknown]
  - Musculoskeletal stiffness [Unknown]
  - Influenza like illness [Not Recovered/Not Resolved]
  - Rectal polyp [Unknown]
  - Pain in extremity [Not Recovered/Not Resolved]
  - Back pain [Not Recovered/Not Resolved]
  - Nausea [Unknown]
  - Blood pressure increased [Unknown]
  - Colorectal cancer [Unknown]
  - Dizziness [Unknown]
  - Skin laceration [Recovering/Resolving]
  - Nasopharyngitis [Unknown]
  - Off label use [Unknown]

NARRATIVE: CASE EVENT DATE: 20170505
